FAERS Safety Report 5320827-1 (Version None)
Quarter: 2007Q2

REPORT INFORMATION
  Report Type: 
  Country: None (occurrence: None)
  Receive Date: 20070509
  Receipt Date: 20070508
  Transmission Date: 20071010
  Serious: Yes (Life-Threatening, Hospitalization, Other)
  Sender: FDA-Public Use
  Company Number: AU-MERCK-0609AUS00156

PATIENT
  Age: 66 Year
  Sex: Male
  Weight: 80 kg

DRUGS (2)
  1. FOSAMAX [Suspect]
     Indication: OSTEOPOROSIS
     Route: 048
     Dates: start: 20060912, end: 20060912
  2. FOSAMAX [Suspect]
     Indication: THORACIC VERTEBRAL FRACTURE
     Route: 048
     Dates: start: 20060912, end: 20060912

REACTIONS (4)
  - BACK PAIN [None]
  - DYSPNOEA [None]
  - MALAISE [None]
  - MUSCULOSKELETAL CHEST PAIN [None]
